FAERS Safety Report 19430059 (Version 1)
Quarter: 2021Q2

REPORT INFORMATION
  Report Type: Report from Study
  Country: ZA (occurrence: ZA)
  Receive Date: 20210617
  Receipt Date: 20210617
  Transmission Date: 20210717
  Serious: Yes (Hospitalization)
  Sender: FDA-Public Use
  Company Number: ZA-JNJFOC-20210624605

PATIENT
  Age: 51 Year
  Sex: Male
  Weight: 119 kg

DRUGS (2)
  1. ESKETAMINE [Suspect]
     Active Substance: ESKETAMINE
     Indication: DEPRESSION
     Dates: start: 20170913
  2. URBANOL [Concomitant]
     Active Substance: CLOBAZAM
     Indication: ADJUSTMENT DISORDER
     Route: 048
     Dates: start: 20190603

REACTIONS (1)
  - COVID-19 [Recovering/Resolving]

NARRATIVE: CASE EVENT DATE: 20210605
